FAERS Safety Report 12194522 (Version 1)
Quarter: 2016Q1

REPORT INFORMATION
  Report Type: Spontaneous
  Country: US (occurrence: US)
  Receive Date: 20160321
  Receipt Date: 20160321
  Transmission Date: 20160526
  Serious: No
  Sender: FDA-Public Use
  Company Number: US-PFIZER INC-2016122836

PATIENT

DRUGS (2)
  1. ADVIL [Suspect]
     Active Substance: IBUPROFEN
     Dosage: 600 MG, 3X/DAY
  2. MUCINEX [Suspect]
     Active Substance: GUAIFENESIN
     Dosage: 600 MG, 2X/DAY (12 HRS)

REACTIONS (2)
  - Drug ineffective [Unknown]
  - Overdose [Unknown]
